FAERS Safety Report 14905012 (Version 1)
Quarter: 2018Q2

REPORT INFORMATION
  Report Type: Spontaneous
  Country: US (occurrence: US)
  Receive Date: 20180517
  Receipt Date: 20180517
  Transmission Date: 20180711
  Serious: No
  Sender: FDA-Public Use
  Company Number: US-SA-2017SA220760

PATIENT
  Sex: Female

DRUGS (3)
  1. SOLOSTAR [Suspect]
     Active Substance: DEVICE
     Indication: DIABETES MELLITUS
  2. LANTUS SOLOSTAR [Suspect]
     Active Substance: INSULIN GLARGINE
     Indication: DIABETES MELLITUS
     Dosage: DOSE:15 UNIT(S)
     Route: 051
  3. NPH INSULIN [Concomitant]
     Active Substance: INSULIN BEEF
     Dosage: DOSE:45 UNIT(S)
     Route: 065

REACTIONS (1)
  - Hyperglycaemia [Unknown]
